FAERS Safety Report 6127655-8 (Version None)
Quarter: 2009Q1

REPORT INFORMATION
  Report Type: 
  Country: None (occurrence: None)
  Receive Date: 20090323
  Receipt Date: 20090310
  Transmission Date: 20090719
  Serious: Yes (Other)
  Sender: FDA-Public Use
  Company Number: US-PFIZER INC-2006072095

PATIENT
  Sex: Female

DRUGS (6)
  1. PROVERA [Suspect]
     Indication: HORMONE THERAPY
     Dosage: 10MG/2.5
     Route: 048
     Dates: start: 19930801, end: 20020101
  2. MEDROXYPROGESTERONE AND MEDROXYPROGESTERONE ACETATE [Suspect]
     Indication: HORMONE THERAPY
     Dosage: UNK
     Route: 048
  3. PREMPRO [Suspect]
     Indication: HORMONE THERAPY
     Dosage: 0.625/2.5
     Route: 065
     Dates: start: 19990201, end: 19990501
  4. PREMARIN [Suspect]
     Indication: HORMONE THERAPY
     Dosage: 0.3 MG, UNK
     Dates: start: 19990601
  5. ESTRADIOL [Suspect]
     Indication: HORMONE THERAPY
     Dosage: 1 MG, UNK
     Route: 065
  6. ESTRACE [Suspect]
     Indication: HORMONE THERAPY
     Dosage: UNK
     Route: 065
     Dates: start: 19930801, end: 20020101

REACTIONS (1)
  - BREAST CANCER FEMALE [None]
